FAERS Safety Report 9015848 (Version 1)
Quarter: 2013Q1

REPORT INFORMATION
  Report Type: Spontaneous
  Country: AE (occurrence: None)
  Receive Date: 20130103
  Receipt Date: 20130103
  Transmission Date: 20140127
  Serious: Yes (Hospitalization)
  Sender: FDA-Public Use
  Company Number: NSR_00760_2012

PATIENT
  Age: 28 Year
  Sex: Male

DRUGS (1)
  1. FLUOXETINE (FLUOXETINE) [Suspect]
     Indication: DEPRESSION
     Dosage: (NOT THE PRESCRIBED DOSE)

REACTIONS (16)
  - Intentional overdose [None]
  - Unresponsive to stimuli [None]
  - Body temperature increased [None]
  - Respiratory rate increased [None]
  - Heart rate increased [None]
  - Blood pressure decreased [None]
  - Oxygen saturation decreased [None]
  - Leukocytosis [None]
  - Blood creatinine increased [None]
  - Autonomic nervous system imbalance [None]
  - Suicide attempt [None]
  - Muscle rigidity [None]
  - Gait apraxia [None]
  - Cognitive disorder [None]
  - Nuclear magnetic resonance imaging abnormal [None]
  - Hypometabolism [None]
